FAERS Safety Report 6061330-3 (Version None)
Quarter: 2009Q1

REPORT INFORMATION
  Report Type: 
  Country: None (occurrence: None)
  Receive Date: 20090130
  Receipt Date: 20090130
  Transmission Date: 20090719
  Serious: No
  Sender: FDA-Public Use
  Company Number: None

PATIENT
  Sex: Female

DRUGS (1)
  1. EQUATE HAIR GROWTH TREATMENT FOR WOMEN, ACTAVIS [Suspect]

REACTIONS (5)
  - ALOPECIA [None]
  - ERYTHEMA [None]
  - HAIR GROWTH ABNORMAL [None]
  - SKIN IRRITATION [None]
  - SKIN ULCER [None]
